FAERS Safety Report 8817607 (Version 5)
Quarter: 2013Q1

REPORT INFORMATION
  Report Type: Spontaneous
  Country: US (occurrence: US)
  Receive Date: 20121001
  Receipt Date: 20130118
  Transmission Date: 20140127
  Serious: No
  Sender: FDA-Public Use
  Company Number: US-009507513-1209USA011335

PATIENT
  Sex: Male

DRUGS (5)
  1. PEGINTRON [Suspect]
     Indication: HEPATITIS C
     Dosage: UNK
     Route: 058
     Dates: start: 20050902, end: 20060106
  2. PEGINTRON [Suspect]
     Dosage: UNK
     Route: 058
     Dates: start: 20121005
  3. RIBAVIRIN [Suspect]
     Dosage: UNK
     Route: 048
     Dates: start: 20050902, end: 20060106
  4. RIBAVIRIN [Suspect]
     Dosage: UNK
     Route: 048
     Dates: start: 20121005
  5. TELAPREVIR [Concomitant]
     Indication: HEPATITIS C
     Dosage: UNK
     Dates: start: 20121005, end: 20121228

REACTIONS (25)
  - Drug ineffective [Unknown]
  - Malaise [Unknown]
  - Irritability [Unknown]
  - Diarrhoea [Recovering/Resolving]
  - Disorientation [Unknown]
  - Dizziness [Unknown]
  - Pain [Recovering/Resolving]
  - Injection site erythema [Unknown]
  - Anaemia [Unknown]
  - Injection site erythema [Unknown]
  - Anorectal discomfort [Unknown]
  - Rash [Unknown]
  - Asthenia [Unknown]
  - Mood swings [Unknown]
  - Depression [Unknown]
  - Influenza like illness [Unknown]
  - Fatigue [Unknown]
  - Blood uric acid increased [Unknown]
  - Anaemia [Unknown]
  - Rash [Unknown]
  - Drug ineffective [Unknown]
  - Rash [Recovering/Resolving]
  - Injection site reaction [Unknown]
  - Gastrointestinal disorder [Recovered/Resolved]
  - Dyspnoea [Recovering/Resolving]
